FAERS Safety Report 7639629-6 (Version None)
Quarter: 2011Q3

REPORT INFORMATION
  Report Type: 
  Country: None (occurrence: None)
  Receive Date: 20110727
  Receipt Date: 20110719
  Transmission Date: 20111222
  Serious: Yes (Life-Threatening, Hospitalization, Other)
  Sender: FDA-Public Use
  Company Number: DE-TEVA-288935GER

PATIENT
  Age: 49 Year
  Sex: Female
  Weight: 81 kg

DRUGS (3)
  1. MESALAMINE [Suspect]
     Dosage: 4000 MILLIGRAM;
     Route: 048
     Dates: start: 20110302, end: 20110322
  2. MESALAMINE [Suspect]
     Dosage: 2000 MILLIGRAM;
     Route: 048
     Dates: start: 20110303, end: 20110323
  3. IBUPROFEN [Suspect]
     Dosage: 400 MILLIGRAM; 14-18 MAR 2011: 8X1 DAILY IF REQUIRED
     Route: 048
     Dates: start: 20110104, end: 20110318

REACTIONS (1)
  - PANCREATITIS ACUTE [None]
